FAERS Safety Report 7076123-8 (Version None)
Quarter: 2010Q4

REPORT INFORMATION
  Report Type: 
  Country: None (occurrence: None)
  Receive Date: 20101021
  Receipt Date: 20101011
  Transmission Date: 20110411
  Serious: Yes (Hospitalization)
  Sender: FDA-Public Use
  Company Number: 724266

PATIENT
  Age: 34 Year
  Sex: Female

DRUGS (4)
  1. EPINEPHRINE [Suspect]
  2. (METOPROLOL) [Concomitant]
  3. CARVEDILOL [Concomitant]
  4. MIRTAZAPINE [Concomitant]

REACTIONS (16)
  - AGGRESSION [None]
  - ANXIETY [None]
  - BLOOD PRESSURE INCREASED [None]
  - CARDIAC ENZYMES INCREASED [None]
  - COLD SWEAT [None]
  - DIZZINESS [None]
  - ELECTROCARDIOGRAM QT PROLONGED [None]
  - EPINEPHRINE INCREASED [None]
  - HYPERGLYCAEMIA [None]
  - HYPOKALAEMIA [None]
  - INTENTIONAL DRUG MISUSE [None]
  - SUPRAVENTRICULAR EXTRASYSTOLES [None]
  - TOXICOLOGIC TEST ABNORMAL [None]
  - UNRESPONSIVE TO STIMULI [None]
  - VENTRICULAR TACHYARRHYTHMIA [None]
  - VOMITING [None]
